FAERS Safety Report 7649751-6 (Version None)
Quarter: 2011Q3

REPORT INFORMATION
  Report Type: 
  Country: None (occurrence: None)
  Receive Date: 20110802
  Receipt Date: 20110720
  Transmission Date: 20111222
  Serious: Yes (Other)
  Sender: FDA-Public Use
  Company Number: CA-ELI_LILLY_AND_COMPANY-CA201107005301

PATIENT
  Sex: Male

DRUGS (12)
  1. SERTRALINE HYDROCHLORIDE [Concomitant]
  2. TEMAZEPAM [Concomitant]
  3. VALSARTAN [Concomitant]
  4. ZYPREXA [Suspect]
     Dosage: 2.5 MG, QD
  5. ZYPREXA [Suspect]
     Dosage: 10 MG, UNK
  6. ZYPREXA [Suspect]
     Dosage: 5 MG, QD
  7. RAMIPRIL [Concomitant]
  8. CELEXA [Concomitant]
  9. VENLAFAXINE [Concomitant]
  10. PAROXETINE HCL [Concomitant]
  11. MIRTAZAPINE [Concomitant]
  12. DIAZEPAM [Concomitant]

REACTIONS (17)
  - CONVULSION [None]
  - DIABETIC NEPHROPATHY [None]
  - TONSILLITIS [None]
  - PROSTATITIS [None]
  - HYPERGLYCAEMIA [None]
  - SYNCOPE [None]
  - EPISTAXIS [None]
  - DIABETES MELLITUS [None]
  - HYPERCHOLESTEROLAEMIA [None]
  - GLOMERULONEPHRITIS ACUTE [None]
  - BLOOD TRIGLYCERIDES INCREASED [None]
  - HAEMOPTYSIS [None]
  - IRON DEFICIENCY ANAEMIA [None]
  - BRONCHITIS CHRONIC [None]
  - SEBORRHOEIC DERMATITIS [None]
  - RENAL FAILURE [None]
  - CELLULITIS [None]
